FAERS Safety Report 9513636 (Version 2)
Quarter: 2014Q1

REPORT INFORMATION
  Report Type: Spontaneous
  Country: GB (occurrence: GB)
  Receive Date: 20130910
  Receipt Date: 20140128
  Transmission Date: 20141002
  Serious: Yes (Other)
  Sender: FDA-Public Use
  Company Number: GB-GLAXOSMITHKLINE-B0920293A

PATIENT
  Age: 49 Year
  Sex: Female
  Weight: 54 kg

DRUGS (3)
  1. LAMOTRIGINE [Suspect]
     Indication: DEPRESSION
     Dosage: 25MG PER DAY
     Route: 048
     Dates: start: 20130803, end: 20130816
  2. LAMOTRIGINE [Suspect]
     Indication: DEPRESSION
     Dosage: 50MG PER DAY
     Route: 048
     Dates: start: 20130817
  3. LITHIUM CARBONATE [Concomitant]
     Dosage: 600MG PER DAY

REACTIONS (4)
  - Headache [Not Recovered/Not Resolved]
  - Irritability [Recovering/Resolving]
  - Anger [Recovering/Resolving]
  - Poor quality sleep [Recovering/Resolving]
